FAERS Safety Report 12068614 (Version 1)
Quarter: 2016Q1

REPORT INFORMATION
  Report Type: Spontaneous
  Country: JP (occurrence: JP)
  Receive Date: 20160211
  Receipt Date: 20160211
  Transmission Date: 20160526
  Serious: Yes (Hospitalization)
  Sender: FDA-Public Use
  Company Number: JP-ASTRAZENECA-2016SE12669

PATIENT
  Sex: Female
  Weight: 52 kg

DRUGS (4)
  1. OMEPRAL [Suspect]
     Active Substance: OMEPRAZOLE
     Route: 048
  2. WARFARIN POTASSIUM [Interacting]
     Active Substance: WARFARIN POTASSIUM
     Indication: THROMBOSIS PROPHYLAXIS
     Route: 065
  3. OXALIPLATIN. [Concomitant]
     Active Substance: OXALIPLATIN
     Route: 065
  4. CAPECITABINE. [Concomitant]
     Active Substance: CAPECITABINE
     Indication: METASTASES TO LYMPH NODES
     Dosage: 2400 MG/DAY, NR. OF SEPARATE DOSAGES UNKNOWN (DAILY ADMINISTRATION FOR 2 WEEKS AND 1-WEEK INTERVAL)
     Route: 065

REACTIONS (3)
  - Haemorrhage subcutaneous [Unknown]
  - Drug interaction [Unknown]
  - International normalised ratio increased [Recovering/Resolving]
